FAERS Safety Report 7540861-0 (Version None)
Quarter: 2011Q2

REPORT INFORMATION
  Report Type: 
  Country: None (occurrence: None)
  Receive Date: 20110610
  Receipt Date: 20110603
  Transmission Date: 20111010
  Serious: Yes (Life-Threatening, Other)
  Sender: FDA-Public Use
  Company Number: CA-ROXANE LABORATORIES, INC.-2011-RO-00775RO

PATIENT
  Age: 16 Year
  Sex: Female
  Weight: 41 kg

DRUGS (8)
  1. RISPERIDONE [Suspect]
     Indication: PSYCHOTIC DISORDER
     Dosage: 1 MG
  2. CLONAZEPAM [Concomitant]
     Indication: CONVERSION DISORDER
  3. RISPERIDONE [Suspect]
     Indication: SOCIAL PHOBIA
     Dosage: 4.5 MG
  4. CITALOPRAM HYDROBROMIDE [Suspect]
     Indication: PSYCHOTIC DISORDER
  5. OLANZAPINE [Concomitant]
     Indication: CONVERSION DISORDER
  6. RISPERIDONE [Suspect]
     Indication: OBSESSIVE-COMPULSIVE DISORDER
     Dosage: 2.25 MG
  7. CITALOPRAM HYDROBROMIDE [Suspect]
     Indication: OBSESSIVE-COMPULSIVE DISORDER
     Dosage: 10 MG
  8. CITALOPRAM HYDROBROMIDE [Suspect]
     Indication: SOCIAL PHOBIA
     Dosage: 50 MG

REACTIONS (5)
  - SUICIDE ATTEMPT [None]
  - SUICIDAL IDEATION [None]
  - DYSTONIA [None]
  - WEIGHT DECREASED [None]
  - ANXIETY [None]
